FAERS Safety Report 4869913-0 (Version None)
Quarter: 2005Q4

REPORT INFORMATION
  Report Type: 
  Country: None (occurrence: None)
  Receive Date: 20051230
  Receipt Date: 20050926
  Transmission Date: 20060501
  Serious: Yes (Hospitalization, Disabling)
  Sender: FDA-Public Use
  Company Number: US-MERCK-0509USA04157

PATIENT
  Age: 59 Year
  Sex: Male
  Weight: 109 kg

DRUGS (4)
  1. VIOXX [Suspect]
     Indication: OSTEOARTHRITIS
     Route: 048
     Dates: start: 20010101, end: 20020401
  2. VIOXX [Suspect]
     Route: 048
     Dates: start: 20010101, end: 20020401
  3. VIOXX [Suspect]
     Indication: PAIN
     Route: 048
     Dates: start: 20010101, end: 20020401
  4. VIOXX [Suspect]
     Route: 048
     Dates: start: 20010101, end: 20020401

REACTIONS (6)
  - BLOOD CHOLESTEROL INCREASED [None]
  - GASTROOESOPHAGEAL REFLUX DISEASE [None]
  - HYPERTENSION [None]
  - JOINT LOCK [None]
  - MYOCARDIAL INFARCTION [None]
  - OBESITY [None]
